FAERS Safety Report 12525111 (Version 4)
Quarter: 2016Q4

REPORT INFORMATION
  Report Type: Spontaneous
  Country: US (occurrence: US)
  Receive Date: 20160704
  Receipt Date: 20161122
  Transmission Date: 20170207
  Serious: No
  Sender: FDA-Public Use
  Company Number: US-009507513-1606USA003880

PATIENT
  Sex: Female
  Weight: 92.63 kg

DRUGS (1)
  1. NEXPLANON [Suspect]
     Active Substance: ETONOGESTREL
     Indication: CONTRACEPTION
     Dosage: LEFT UPPER ARM
     Route: 059
     Dates: start: 201504

REACTIONS (6)
  - Menstruation irregular [Not Recovered/Not Resolved]
  - Device difficult to use [Not Recovered/Not Resolved]
  - Dysmenorrhoea [Not Recovered/Not Resolved]
  - Device breakage [Not Recovered/Not Resolved]
  - Device kink [Not Recovered/Not Resolved]
  - Intentional medical device removal by patient [Unknown]
